FAERS Safety Report 9217412 (Version 2)
Quarter: 2014Q3

REPORT INFORMATION
  Report Type: Spontaneous
  Country: US (occurrence: None)
  Receive Date: 20130404
  Receipt Date: 20140818
  Transmission Date: 20150326
  Serious: Yes (Other)
  Sender: FDA-Public Use
  Company Number: JPI-P-030806

PATIENT
  Age: 53 Year
  Sex: Male

DRUGS (10)
  1. BYSTOLIC (NEBIVOLOL HYDROHLORIDE) [Concomitant]
  2. FLUTICASONE PROPIONATE (FLUTICASONE PROPIONATE) [Concomitant]
  3. SIMVASTATIN (SIMVASTATIN) [Concomitant]
     Active Substance: SIMVASTATIN
  4. AMLODIPINE BESYLATE (AMLODIPINE BESILATE) [Concomitant]
     Active Substance: AMLODIPINE BESYLATE
  5. XYREM [Suspect]
     Active Substance: SODIUM OXYBATE
     Indication: INSOMNIA
     Dosage: 4.5 (2.25 GM, 2 IN 1 D), ORAL
     Route: 048
     Dates: start: 20100513
  6. VICODIN [Concomitant]
     Active Substance: ACETAMINOPHEN\HYDROCODONE BITARTRATE
  7. NEBIVOLOL (NEBIVOLOL) (NEBIVOLOL) [Concomitant]
     Active Substance: NEBIVOLOL
  8. ASTELIN (AZELASTINE HYDROCHLORIDE) [Concomitant]
     Active Substance: AZELASTINE HYDROCHLORIDE
  9. CLOMIPRAMINE HCL (CLOMIPRAMINE HYDROCHLORIDE) [Concomitant]
  10. CARISOPRODOL (CARISOPRODOL) [Concomitant]
     Active Substance: CARISOPRODOL

REACTIONS (9)
  - Off label use [None]
  - Drug withdrawal syndrome [None]
  - Drug ineffective [None]
  - Rebound effect [None]
  - Personality disorder [None]
  - Insomnia [None]
  - Sinus operation [None]
  - Sleep apnoea syndrome [None]
  - Nasal congestion [None]
